FAERS Safety Report 4430505-9 (Version None)
Quarter: 2004Q3

REPORT INFORMATION
  Report Type: 
  Country: None (occurrence: None)
  Receive Date: 20040721
  Receipt Date: 20031124
  Transmission Date: 20050211
  Serious: Yes (Other)
  Sender: FDA-Public Use
  Company Number: WAES 0311USA02717

PATIENT
  Age: 80 Year

DRUGS (2)
  1. VIOXX [Suspect]
     Indication: ARTHRITIS
     Dosage: 25 MG/DAILY/PO
     Route: 048
  2. REMINYL [Concomitant]

REACTIONS (1)
  - STEVENS-JOHNSON SYNDROME [None]
